FAERS Safety Report 13024214 (Version 1)
Quarter: 2016Q4

REPORT INFORMATION
  Report Type: Report from Study
  Country: DE (occurrence: DE)
  Receive Date: 20161213
  Receipt Date: 20161213
  Transmission Date: 20170207
  Serious: Yes (Other)
  Sender: FDA-Public Use
  Company Number: DE-JNJFOC-20161207682

PATIENT
  Sex: Female

DRUGS (7)
  1. DOXORUBICIN HYDROCHLORIDE. [Suspect]
     Active Substance: DOXORUBICIN HYDROCHLORIDE
     Indication: FEMALE REPRODUCTIVE NEOPLASM
     Dosage: PEGYLATED; AT LEAST 60 MINUTES
     Route: 065
  2. IFOSFAMIDE. [Suspect]
     Active Substance: IFOSFAMIDE
     Indication: UTERINE LEIOMYOSARCOMA
     Route: 065
  3. CARBOPLATIN. [Suspect]
     Active Substance: CARBOPLATIN
     Indication: LEIOMYOSARCOMA
     Dosage: 30 MINUTE INTRAVENOUS INFUSION ; 6 CYCLES
     Route: 042
  4. CARBOPLATIN. [Suspect]
     Active Substance: CARBOPLATIN
     Indication: ENDOMETRIAL STROMAL SARCOMA
     Dosage: 30 MINUTE INTRAVENOUS INFUSION ; 6 CYCLES
     Route: 042
  5. DOXORUBICIN HYDROCHLORIDE. [Suspect]
     Active Substance: DOXORUBICIN HYDROCHLORIDE
     Indication: LEIOMYOSARCOMA
     Dosage: PEGYLATED; AT LEAST 60 MINUTES
     Route: 065
  6. CARBOPLATIN. [Suspect]
     Active Substance: CARBOPLATIN
     Indication: FEMALE REPRODUCTIVE NEOPLASM
     Dosage: 30 MINUTE INTRAVENOUS INFUSION ; 6 CYCLES
     Route: 042
  7. DOXORUBICIN HYDROCHLORIDE. [Suspect]
     Active Substance: DOXORUBICIN HYDROCHLORIDE
     Indication: ENDOMETRIAL STROMAL SARCOMA
     Dosage: PEGYLATED; AT LEAST 60 MINUTES
     Route: 065

REACTIONS (18)
  - Neutropenia [Unknown]
  - Anaemia [Unknown]
  - Constipation [Unknown]
  - Palmar-plantar erythrodysaesthesia syndrome [Unknown]
  - Fatigue [Unknown]
  - Alopecia [Unknown]
  - Mucosal inflammation [Unknown]
  - Hypersensitivity [Unknown]
  - Peripheral sensory neuropathy [Unknown]
  - Nausea [Unknown]
  - Leukopenia [Unknown]
  - Thrombocytopenia [Unknown]
  - Vomiting [Unknown]
  - Toxicity to various agents [Unknown]
  - Gamma-glutamyltransferase increased [Unknown]
  - Pain [Unknown]
  - Stomatitis [Unknown]
  - Treatment noncompliance [Unknown]
